FAERS Safety Report 10621626 (Version 1)
Quarter: 2014Q4

REPORT INFORMATION
  Report Type: Spontaneous
  Country: US (occurrence: US)
  Receive Date: 20141203
  Receipt Date: 20141203
  Transmission Date: 20150529
  Serious: Yes (Hospitalization, Other)
  Sender: FDA-Public Use
  Company Number: US-SA-2014SA162557

PATIENT
  Sex: Male

DRUGS (3)
  1. LASIX [Suspect]
     Active Substance: FUROSEMIDE
     Route: 065
  2. AMARYL [Suspect]
     Active Substance: GLIMEPIRIDE
     Indication: DIABETES MELLITUS
     Route: 065
  3. AVANDIA [Suspect]
     Active Substance: ROSIGLITAZONE MALEATE
     Route: 065

REACTIONS (6)
  - Stent placement [Unknown]
  - Burning sensation [Unknown]
  - Eye swelling [Unknown]
  - Herpes zoster [Unknown]
  - Cardiac operation [Unknown]
  - Prostatomegaly [Unknown]

NARRATIVE: CASE EVENT DATE: 2008
